FAERS Safety Report 8312227-7 (Version None)
Quarter: 2012Q2

REPORT INFORMATION
  Report Type: 
  Country: None (occurrence: None)
  Receive Date: 20120425
  Receipt Date: 20120412
  Transmission Date: 20120825
  Serious: Yes (Other)
  Sender: FDA-Public Use
  Company Number: CHPA2012US009258

PATIENT
  Age: 78 Year
  Sex: Female

DRUGS (1)
  1. MAALOX MAX ANTACID+ANTIGAS [Suspect]
     Indication: DYSPEPSIA
     Dosage: 2 DF, PRN
     Route: 048

REACTIONS (2)
  - DYSGEUSIA [None]
  - HIP FRACTURE [None]
